FAERS Safety Report 5126695-5 (Version None)
Quarter: 2006Q4

REPORT INFORMATION
  Report Type: 
  Country: None (occurrence: None)
  Receive Date: 20061012
  Receipt Date: 20061012
  Transmission Date: 20070319
  Serious: Yes (Hospitalization)
  Sender: FDA-Public Use
  Company Number: None

PATIENT
  Age: 70 Year
  Sex: Male
  Weight: 53.9 kg

DRUGS (1)
  1. HEPARIN [Suspect]
     Dosage: 1500 ON, 5000 Q8H, SUBCUTAN
     Route: 058
     Dates: start: 20060621, end: 20060717

REACTIONS (1)
  - THROMBOCYTOPENIA [None]
